FAERS Safety Report 7740921-5 (Version None)
Quarter: 2011Q3

REPORT INFORMATION
  Report Type: 
  Country: None (occurrence: None)
  Receive Date: 20110909
  Receipt Date: 20110830
  Transmission Date: 20111222
  Serious: Yes (Hospitalization, Other)
  Sender: FDA-Public Use
  Company Number: US-PERRIGO-11US007199

PATIENT
  Sex: Male
  Weight: 79.365 kg

DRUGS (8)
  1. AMLODIPINE BESYLATE [Concomitant]
     Indication: HYPERTENSION
     Dosage: 5 MG, BID
     Route: 065
  2. DULCOLAX [Concomitant]
     Indication: CONGENITAL MEGACOLON
  3. POLYETHYLENE GLYCOL 3350 [Suspect]
     Dosage: 136 G, WEEKLY
     Route: 048
     Dates: start: 20110101
  4. ATENOLOL [Concomitant]
     Indication: HYPERTENSION
     Dosage: 50 MG, BID
     Route: 065
  5. DULCOLAX [Concomitant]
     Indication: FAECAL INCONTINENCE
     Dosage: 1 CAPSULE, DAILY
     Route: 065
  6. FAMOTIDINE [Concomitant]
     Indication: PROPHYLAXIS
     Dosage: 20 MG, QD
     Route: 065
  7. POLYETHYLENE GLYCOL 3350 [Suspect]
     Indication: CONGENITAL MEGACOLON
     Dosage: 17 G, BID
     Route: 048
     Dates: start: 20110101
  8. DOXAZOSIN MESYLATE [Concomitant]
     Indication: HYPERTENSION
     Dosage: 2 MG, QD
     Route: 065

REACTIONS (5)
  - DIARRHOEA [None]
  - INCORRECT DRUG ADMINISTRATION DURATION [None]
  - OVERDOSE [None]
  - INAPPROPRIATE SCHEDULE OF DRUG ADMINISTRATION [None]
  - FAECALOMA [None]
